FAERS Safety Report 12281365 (Version 2)
Quarter: 2016Q2

REPORT INFORMATION
  Report Type: Spontaneous
  Country: FR (occurrence: FR)
  Receive Date: 20160419
  Receipt Date: 20160421
  Transmission Date: 20160815
  Serious: Yes (Hospitalization)
  Sender: FDA-Public Use
  Company Number: FR-JNJFOC-20160413321

PATIENT
  Age: 38 Year
  Sex: Female

DRUGS (6)
  1. TERCIAN [Suspect]
     Active Substance: CYAMEMAZINE
     Indication: PRODUCT USED FOR UNKNOWN INDICATION
     Route: 048
     Dates: start: 20151128, end: 20151211
  2. DEPAMIDE [Suspect]
     Active Substance: VALPROMIDE
     Indication: NEUROLEPTIC MALIGNANT SYNDROME
     Route: 048
     Dates: start: 20151117, end: 20151215
  3. RISPERDAL [Suspect]
     Active Substance: RISPERIDONE
     Indication: PRODUCT USED FOR UNKNOWN INDICATION
     Route: 048
     Dates: start: 20150613, end: 20150620
  4. RISPERDAL [Suspect]
     Active Substance: RISPERIDONE
     Indication: PRODUCT USED FOR UNKNOWN INDICATION
     Dosage: STARTED ON AN UNSPECIFIED DATE BETWEEN 13 TO 21 JUN 2015
     Route: 048
     Dates: start: 201506, end: 20151215
  5. TIAPRIDAL [Suspect]
     Active Substance: TIAPRIDE HYDROCHLORIDE
     Indication: PRODUCT USED FOR UNKNOWN INDICATION
     Route: 048
     Dates: start: 20151022, end: 20151215
  6. DEPAMIDE [Suspect]
     Active Substance: VALPROMIDE
     Indication: NEUROLEPTIC MALIGNANT SYNDROME
     Dosage: FOR SEVERAL YEARS
     Route: 048
     Dates: end: 20150606

REACTIONS (1)
  - Hyponatraemic seizure [Recovered/Resolved]

NARRATIVE: CASE EVENT DATE: 20151216
